FAERS Safety Report 5420550-9 (Version None)
Quarter: 2007Q3

REPORT INFORMATION
  Report Type: 
  Country: None (occurrence: None)
  Receive Date: 20070821
  Receipt Date: 20070619
  Transmission Date: 20080115
  Serious: No
  Sender: FDA-Public Use
  Company Number: US-KINGPHARMUSA00001-K200700766

PATIENT

DRUGS (5)
  1. CYTOMEL [Suspect]
     Indication: DEPRESSION
     Dosage: 25 MCG, QD
     Route: 048
     Dates: start: 19930101, end: 20070101
  2. CYTOMEL [Suspect]
     Dosage: 10 MCG, QD
     Route: 048
     Dates: start: 20070101
  3. MODURETIC 5-50 [Concomitant]
  4. TOFRANIL                           /00053902/ [Concomitant]
  5. LIPITOR [Concomitant]
     Dosage: UNK, UNK

REACTIONS (3)
  - THYROXINE DECREASED [None]
  - THYROXINE INCREASED [None]
  - TRI-IODOTHYRONINE INCREASED [None]
